FAERS Safety Report 9581205 (Version 1)
Quarter: 2013Q4

REPORT INFORMATION
  Report Type: Report from Study
  Country: FR (occurrence: FR)
  Receive Date: 20131002
  Receipt Date: 20131002
  Transmission Date: 20140711
  Serious: Yes (Death, Life-Threatening, Other)
  Sender: FDA-Public Use
  Company Number: FR-CELGENEUS-056-C4047-13094225

PATIENT
  Age: 60 Year
  Sex: Male
  Weight: 74 kg

DRUGS (4)
  1. CC-4047 [Suspect]
     Indication: PLASMA CELL MYELOMA
     Dosage: 4 MILLIGRAM
     Route: 048
     Dates: start: 20130521, end: 20130727
  2. DEXAMETHASONE [Concomitant]
     Indication: PRODUCT USED FOR UNKNOWN INDICATION
     Route: 065
  3. KARDEGIC [Concomitant]
     Indication: PRODUCT USED FOR UNKNOWN INDICATION
     Route: 065
  4. ZOMETA [Concomitant]
     Indication: PRODUCT USED FOR UNKNOWN INDICATION
     Route: 065

REACTIONS (7)
  - Respiratory distress [Fatal]
  - Coma [Unknown]
  - Anaemia [Unknown]
  - Lymphopenia [Unknown]
  - Thrombocytopenia [Unknown]
  - Neutropenia [Unknown]
  - Plasma cell myeloma [Unknown]
